FAERS Safety Report 10076905 (Version 1)
Quarter: 2014Q2

REPORT INFORMATION
  Report Type: Spontaneous
  Country: DE (occurrence: DE)
  Receive Date: 20140414
  Receipt Date: 20140414
  Transmission Date: 20141212
  Serious: Yes (Hospitalization)
  Sender: FDA-Public Use
  Company Number: DE-UCBSA-117282

PATIENT
  Age: 13 Month
  Sex: Female
  Weight: 11 kg

DRUGS (1)
  1. KEPPRA [Suspect]
     Dosage: 100MG/ML, DOSAGE: 1.5ML; TOTAL AMOUNT: 150MG
     Route: 048
     Dates: start: 20140401, end: 20140401

REACTIONS (1)
  - Accidental exposure to product by child [Unknown]
